FAERS Safety Report 5489166-2 (Version None)
Quarter: 2007Q4

REPORT INFORMATION
  Report Type: 
  Country: None (occurrence: None)
  Receive Date: 20071009
  Receipt Date: 20070925
  Transmission Date: 20080405
  Serious: Yes (Hospitalization)
  Sender: FDA-Public Use
  Company Number: WSDF_00675

PATIENT
  Age: 59 Year
  Sex: Male
  Weight: 100 kg

DRUGS (3)
  1. WINRHO SDF [Suspect]
     Indication: IDIOPATHIC THROMBOCYTOPENIC PURPURA
     Dosage: 75 ?G/KG ONCE
     Dates: start: 20070914, end: 20070914
  2. WINRHO SDF [Suspect]
     Indication: IDIOPATHIC THROMBOCYTOPENIC PURPURA
     Dosage: 75 ?G/KG ONCE
     Dates: start: 20070914, end: 20070914
  3. WINRHO SDF [Suspect]
     Indication: IDIOPATHIC THROMBOCYTOPENIC PURPURA
     Dosage: 75 ?G/KG ONCE
     Dates: start: 20070914, end: 20070914

REACTIONS (29)
  - ASPARTATE AMINOTRANSFERASE INCREASED [None]
  - AUTOIMMUNE DISORDER [None]
  - BLOOD GLUCOSE INCREASED [None]
  - BLOOD SODIUM DECREASED [None]
  - BRADYCARDIA [None]
  - CARDIAC MURMUR [None]
  - CONDITION AGGRAVATED [None]
  - COOMBS DIRECT TEST POSITIVE [None]
  - DIARRHOEA [None]
  - DRUG INTERACTION [None]
  - DYSURIA [None]
  - EPIGASTRIC DISCOMFORT [None]
  - EXTRAVASCULAR HAEMOLYSIS [None]
  - FAECES PALE [None]
  - FLUID OVERLOAD [None]
  - HAEMOLYTIC ANAEMIA [None]
  - HYPOTHYROIDISM [None]
  - INTRAVASCULAR HAEMOLYSIS [None]
  - LIVER FUNCTION TEST ABNORMAL [None]
  - MALARIA [None]
  - NAUSEA [None]
  - PANCYTOPENIA [None]
  - RENAL FAILURE ACUTE [None]
  - SINUS ARRHYTHMIA [None]
  - SLEEP APNOEA SYNDROME [None]
  - SPLENOMEGALY [None]
  - TACHYCARDIA [None]
  - THROMBOCYTOPENIA [None]
  - WHITE BLOOD CELL COUNT INCREASED [None]
